FAERS Safety Report 7208580-8 (Version None)
Quarter: 2010Q4

REPORT INFORMATION
  Report Type: 
  Country: None (occurrence: None)
  Receive Date: 20101222
  Receipt Date: 20100430
  Transmission Date: 20110411
  Serious: Yes (Death, Other)
  Sender: FDA-Public Use
  Company Number: 7003521

PATIENT
  Age: 59 Year
  Sex: Male

DRUGS (4)
  1. CYANOKIT [Suspect]
     Indication: POISONING
     Dosage: 2.5 GM, ONCE, INTRAVENOUS DRIP
     Route: 041
     Dates: start: 20100328, end: 20100328
  2. ANTIHYPERTENSIVES (ANTIHYPERTENSIVES) [Concomitant]
  3. DIURETICS (DIURETICS) [Concomitant]
  4. INSULIN (INSULIN) [Concomitant]

REACTIONS (1)
  - DEVICE INFUSION ISSUE [None]
